FAERS Safety Report 23340882 (Version 1)
Quarter: 2023Q4

REPORT INFORMATION
  Report Type: Spontaneous
  Country: GB (occurrence: GB)
  Receive Date: 20231227
  Receipt Date: 20231227
  Transmission Date: 20240110
  Serious: Yes (Other)
  Sender: FDA-Public Use
  Company Number: GB-JNJFOC-20231250437

PATIENT
  Sex: Female

DRUGS (2)
  1. PSEUDOEPHEDRINE HYDROCHLORIDE [Interacting]
     Active Substance: PSEUDOEPHEDRINE HYDROCHLORIDE
     Indication: Nasal congestion
     Route: 065
     Dates: start: 20231215, end: 20231215
  2. ALCOHOL [Interacting]
     Active Substance: ALCOHOL
     Indication: Product used for unknown indication
     Route: 048
     Dates: start: 20231215

REACTIONS (4)
  - Depressed level of consciousness [Recovered/Resolved]
  - Illness [Recovering/Resolving]
  - Alcohol interaction [Unknown]
  - Hypersomnia [Recovering/Resolving]
